FAERS Safety Report 15955663 (Version 2)
Quarter: 2019Q1

REPORT INFORMATION
  Report Type: Spontaneous
  Country: FR (occurrence: FR)
  Receive Date: 20190213
  Receipt Date: 20190219
  Transmission Date: 20190417
  Serious: Yes (Other)
  Sender: FDA-Public Use
  Company Number: FR-TEVA-2019-FR-1009871

PATIENT
  Age: 82 Year
  Sex: Male
  Weight: 87 kg

DRUGS (10)
  1. CALCIPARINE [Suspect]
     Active Substance: HEPARIN CALCIUM
     Indication: PROPHYLAXIS
     Dosage: 2 DOSAGE FORMS DAILY;
     Route: 058
     Dates: start: 20190109
  2. TAZOCILLINE [Suspect]
     Active Substance: PIPERACILLIN SODIUM\TAZOBACTAM SODIUM
     Indication: INFECTION
     Dosage: 8 MILLIGRAM DAILY;
     Route: 048
     Dates: start: 20181228
  3. KARDEGIC [Concomitant]
     Active Substance: ASPIRIN DL-LYSINE
     Dosage: POWDER FOR ORAL SOLUTION IN SACHET-DOSE
  4. OMEXEL L.P. 0,4 MG, COMPRIME PELLICULE A LIBERATION PROLONGEE [Concomitant]
     Active Substance: TAMSULOSIN HYDROCHLORIDE
     Dosage: EXTENDED RELEASE COATED TABLET
  5. INDAPAMIDE. [Concomitant]
     Active Substance: INDAPAMIDE
  6. INEGY 10 MG/40 MG, COMPRIM [Concomitant]
     Dosage: 1 DF= EZETIMIBE 10 MG + SIMVASTATIN MG
  7. AMIODARONE [Concomitant]
     Active Substance: AMIODARONE
  8. PARACETAMOL [Concomitant]
     Active Substance: ACETAMINOPHEN
  9. AMLODIPINE [Suspect]
     Active Substance: AMLODIPINE BESYLATE
     Indication: HYPERTENSION
     Dosage: 10 MICROGRAM DAILY;
     Route: 048
     Dates: end: 20190111
  10. RAMIPRIL. [Concomitant]
     Active Substance: RAMIPRIL

REACTIONS (2)
  - Pruritus [Recovered/Resolved]
  - Generalised erythema [Recovered/Resolved]

NARRATIVE: CASE EVENT DATE: 20190111
